FAERS Safety Report 22274833 (Version 2)
Quarter: 2023Q2

REPORT INFORMATION
  Report Type: Spontaneous
  Country: JP (occurrence: JP)
  Receive Date: 20230502
  Receipt Date: 20230627
  Transmission Date: 20230722
  Serious: Yes (Hospitalization, Disabling, Other)
  Sender: FDA-Public Use
  Company Number: JP-DSJP-DSJ-2023-117183

PATIENT
  Age: 73 Year
  Sex: Female
  Weight: 33 kg

DRUGS (2)
  1. EDOXABAN TOSYLATE [Suspect]
     Active Substance: EDOXABAN TOSYLATE
     Indication: Product used for unknown indication
     Dosage: UNK
     Route: 065
  2. ONDEXXYA [Suspect]
     Active Substance: ANDEXANET ALFA
     Dosage: UNK
     Route: 065

REACTIONS (6)
  - Basal ganglia haemorrhage [Unknown]
  - Orthopaedic procedure [Unknown]
  - Cerebellar infarction [Recovered/Resolved with Sequelae]
  - Peripheral artery occlusion [Recovered/Resolved with Sequelae]
  - Cerebral infarction [Recovered/Resolved with Sequelae]
  - COVID-19 [Unknown]

NARRATIVE: CASE EVENT DATE: 20220701
